FAERS Safety Report 9788841 (Version 2)
Quarter: 2014Q1

REPORT INFORMATION
  Report Type: Spontaneous
  Country: US (occurrence: US)
  Receive Date: 20131230
  Receipt Date: 20140116
  Transmission Date: 20141002
  Serious: Yes (Death)
  Sender: FDA-Public Use
  Company Number: US-GLAXOSMITHKLINE-A1054572A

PATIENT
  Age: 76 Year
  Sex: Male

DRUGS (1)
  1. VOTRIENT [Suspect]
     Indication: NEOPLASM MALIGNANT
     Dosage: 200MG UNKNOWN
     Route: 065
     Dates: start: 20120217

REACTIONS (2)
  - Death [Fatal]
  - Hospice care [Unknown]
